FAERS Safety Report 18501943 (Version 1)
Quarter: 2020Q4

REPORT INFORMATION
  Report Type: Spontaneous
  Country: US (occurrence: US)
  Receive Date: 20201113
  Receipt Date: 20201113
  Transmission Date: 20210114
  Serious: Yes (Other)
  Sender: FDA-Public Use
  Company Number: US-009507513-2011USA002472

PATIENT
  Age: 417 Month
  Weight: 62.6 kg

DRUGS (8)
  1. PRINIVIL [Suspect]
     Active Substance: LISINOPRIL
     Route: 048
  2. PRILOSEC [Suspect]
     Active Substance: OMEPRAZOLE MAGNESIUM
     Indication: GASTROOESOPHAGEAL REFLUX DISEASE
     Dosage: 40 MILLIGRAM, QD
     Route: 048
     Dates: start: 2006
  3. LISINOPRIL AND HYDROCHLOROTHIAZIDE [Suspect]
     Active Substance: HYDROCHLOROTHIAZIDE\LISINOPRIL
     Route: 048
  4. MOTRIN [Suspect]
     Active Substance: IBUPROFEN
     Indication: PAIN
  5. OMEPRAZOLE. [Suspect]
     Active Substance: OMEPRAZOLE
     Indication: GASTROOESOPHAGEAL REFLUX DISEASE
     Route: 048
  6. METOPROLOL. [Suspect]
     Active Substance: METOPROLOL
     Indication: MIGRAINE
     Route: 048
  7. NEXIUM [Suspect]
     Active Substance: ESOMEPRAZOLE MAGNESIUM
     Indication: GASTROOESOPHAGEAL REFLUX DISEASE
     Dosage: 40 MILLIGRAM, QD
     Route: 048
  8. PRILOSEC [Suspect]
     Active Substance: OMEPRAZOLE MAGNESIUM
     Dosage: 20 MILLIGRAM, QD
     Route: 048

REACTIONS (16)
  - Neck injury [Unknown]
  - Product substitution issue [Unknown]
  - Breast cancer [Unknown]
  - Cough [Unknown]
  - Joint injury [Unknown]
  - Rheumatoid arthritis [Unknown]
  - Chronic kidney disease [Unknown]
  - Road traffic accident [Unknown]
  - Pain [Unknown]
  - Gastrooesophageal reflux disease [Unknown]
  - Reading disorder [Unknown]
  - Limb injury [Unknown]
  - Hypertension [Unknown]
  - Head injury [Unknown]
  - Migraine [Unknown]
  - Gastric ulcer [Unknown]

NARRATIVE: CASE EVENT DATE: 200305
